FAERS Safety Report 5417520-3 (Version None)
Quarter: 2007Q3

REPORT INFORMATION
  Report Type: 
  Country: None (occurrence: None)
  Receive Date: 20070816
  Receipt Date: 20070806
  Transmission Date: 20080115
  Serious: Yes (Hospitalization)
  Sender: FDA-Public Use
  Company Number: GB-MERCK-0708GBR00027

PATIENT
  Age: 38 Year
  Sex: Male

DRUGS (8)
  1. COZAAR [Suspect]
     Indication: SYSTEMIC SCLEROSIS
     Route: 048
  2. ILOPROST [Suspect]
     Indication: SYSTEMIC SCLEROSIS
     Route: 065
  3. NIFEDIPINE [Suspect]
     Indication: SYSTEMIC SCLEROSIS
     Route: 065
  4. CLOPIDOGREL BISULFATE [Suspect]
     Indication: SYSTEMIC SCLEROSIS
     Route: 065
  5. FLUOXETINE [Suspect]
     Indication: SYSTEMIC SCLEROSIS
     Route: 065
  6. LANSOPRAZOLE [Suspect]
     Indication: SYSTEMIC SCLEROSIS
     Route: 065
  7. METHYLPREDNISOLONE 16MG TAB [Suspect]
     Indication: ISCHAEMIA
     Route: 065
  8. CYCLOPHOSPHAMIDE [Suspect]
     Indication: ISCHAEMIA
     Route: 065

REACTIONS (2)
  - DRUG INEFFECTIVE [None]
  - SYSTEMIC SCLEROSIS [None]
